FAERS Safety Report 14769000 (Version 1)
Quarter: 2018Q2

REPORT INFORMATION
  Report Type: Spontaneous
  Country: GB (occurrence: GB)
  Receive Date: 20180417
  Receipt Date: 20180417
  Transmission Date: 20180711
  Serious: Yes (Hospitalization)
  Sender: FDA-Public Use
  Company Number: GB-009507513-1804GBR003026

PATIENT
  Age: 87 Year
  Sex: Male
  Weight: 74.35 kg

DRUGS (11)
  1. SIMVASTATIN. [Concomitant]
     Active Substance: SIMVASTATIN
  2. TAMSULOSIN HYDROCHLORIDE. [Concomitant]
     Active Substance: TAMSULOSIN HYDROCHLORIDE
  3. CASSIA [Concomitant]
  4. PHYLLOCONTIN [Concomitant]
     Active Substance: AMINOPHYLLINE
  5. TILDIEM [Concomitant]
     Active Substance: DILTIAZEM HYDROCHLORIDE
  6. FUROSEMIDE. [Concomitant]
     Active Substance: FUROSEMIDE
  7. ENOXAPARIN SODIUM. [Concomitant]
     Active Substance: ENOXAPARIN SODIUM
  8. SERETIDE [Concomitant]
     Active Substance: FLUTICASONE PROPIONATE\SALMETEROL XINAFOATE
  9. LANSOPRAZOLE. [Concomitant]
     Active Substance: LANSOPRAZOLE
  10. PEMBROLIZUMAB. [Suspect]
     Active Substance: PEMBROLIZUMAB
     Indication: NON-SMALL CELL LUNG CANCER
     Route: 042
     Dates: start: 20171024, end: 20180314
  11. ASPIRIN. [Concomitant]
     Active Substance: ASPIRIN

REACTIONS (1)
  - Liver function test abnormal [Recovering/Resolving]
